FAERS Safety Report 6603356-4 (Version None)
Quarter: 2010Q1

REPORT INFORMATION
  Report Type: 
  Country: None (occurrence: None)
  Receive Date: 20100226
  Receipt Date: 20090224
  Transmission Date: 20100710
  Serious: No
  Sender: FDA-Public Use
  Company Number: A0770227A

PATIENT
  Age: 60 Year
  Sex: Female

DRUGS (2)
  1. VALTREX [Suspect]
     Dosage: 1G THREE TIMES PER DAY
     Route: 048
     Dates: start: 20080701
  2. RANITIDINE [Concomitant]

REACTIONS (4)
  - ABDOMINAL DISTENSION [None]
  - HUNGER [None]
  - MUSCLE SPASMS [None]
  - WEIGHT INCREASED [None]
